FAERS Safety Report 5152926-1 (Version None)
Quarter: 2006Q4

REPORT INFORMATION
  Report Type: 
  Country: None (occurrence: None)
  Receive Date: 20061117
  Receipt Date: 20061106
  Transmission Date: 20070319
  Serious: Yes (Hospitalization)
  Sender: FDA-Public Use
  Company Number: EM2006-0622

PATIENT
  Age: 27 Year
  Sex: Female
  Weight: 56 kg

DRUGS (8)
  1. MACROLIN;  CHIRON CORPORATION [Suspect]
     Indication: HIV INFECTION
     Dosage: 9MU
     Route: 058
     Dates: start: 20060215, end: 20060219
  2. VIREAD [Concomitant]
  3. ZIAGEN [Concomitant]
  4. TELZIR [Concomitant]
  5. NORVIR [Concomitant]
  6. ZOVIRAX [Concomitant]
  7. TRIZIVIR [Concomitant]
  8. NEVIRAPINE [Concomitant]

REACTIONS (4)
  - BLOOD HIV RNA INCREASED [None]
  - CONVULSION [None]
  - ENCEPHALITIS VIRAL [None]
  - MOTOR DYSFUNCTION [None]
